FAERS Safety Report 7218021-2 (Version None)
Quarter: 2011Q1

REPORT INFORMATION
  Report Type: 
  Country: None (occurrence: None)
  Receive Date: 20110110
  Receipt Date: 20110103
  Transmission Date: 20110831
  Serious: Yes (Other)
  Sender: FDA-Public Use
  Company Number: US-PFIZER INC-HQWYE092809AUG04

PATIENT
  Sex: Female

DRUGS (3)
  1. PREMPRO [Suspect]
     Indication: HORMONE REPLACEMENT THERAPY
     Dosage: UNK
     Dates: start: 19920101, end: 20020201
  2. PREMARIN [Suspect]
     Indication: HORMONE REPLACEMENT THERAPY
     Dosage: UNK
     Dates: start: 19920101, end: 20020201
  3. PROVERA [Suspect]
     Indication: HORMONE REPLACEMENT THERAPY
     Dosage: UNK
     Dates: start: 19920101, end: 20020201

REACTIONS (12)
  - HYPOAESTHESIA [None]
  - ANXIETY [None]
  - RAYNAUD'S PHENOMENON [None]
  - FEAR [None]
  - TREMOR [None]
  - CARDIAC DISORDER [None]
  - RETINAL VEIN OCCLUSION [None]
  - SJOGREN'S SYNDROME [None]
  - DEMENTIA [None]
  - BLOOD TRIGLYCERIDES INCREASED [None]
  - DEPRESSION [None]
  - BLOOD CHOLESTEROL INCREASED [None]
